FAERS Safety Report 4592799-9 (Version None)
Quarter: 2005Q1

REPORT INFORMATION
  Report Type: 
  Country: None (occurrence: None)
  Receive Date: 20050228
  Receipt Date: 20050117
  Transmission Date: 20050727
  Serious: Yes (Hospitalization)
  Sender: FDA-Public Use
  Company Number: PHBS2005JP01153

PATIENT
  Age: 1 Year
  Sex: Male
  Weight: 9 kg

DRUGS (1)
  1. VOLTAREN [Suspect]
     Indication: PYREXIA
     Dosage: 37.5 MG, ONCE/SINGLE
     Route: 054
     Dates: start: 20050117, end: 20050117

REACTIONS (11)
  - BLOOD PRESSURE INCREASED [None]
  - BODY TEMPERATURE DECREASED [None]
  - COUGH [None]
  - CRYING [None]
  - HEART RATE INCREASED [None]
  - MEDICATION ERROR [None]
  - OVERDOSE [None]
  - PERIPHERAL COLDNESS [None]
  - PYREXIA [None]
  - RESPIRATORY RATE INCREASED [None]
  - RHINORRHOEA [None]
